FAERS Safety Report 5467386-0 (Version None)
Quarter: 2007Q3

REPORT INFORMATION
  Report Type: 
  Country: None (occurrence: None)
  Receive Date: 20070925
  Receipt Date: 20070828
  Transmission Date: 20080115
  Serious: Yes (Other)
  Sender: FDA-Public Use
  Company Number: AR-PFIZER INC-2007072118

PATIENT
  Sex: Female
  Weight: 55 kg

DRUGS (2)
  1. SUTENT [Suspect]
     Indication: RENAL CELL CARCINOMA STAGE UNSPECIFIED
     Route: 048
  2. TPN [Concomitant]
     Dates: start: 20061201

REACTIONS (8)
  - DYSPNOEA [None]
  - HYPERTENSION [None]
  - OEDEMA PERIPHERAL [None]
  - PAIN IN EXTREMITY [None]
  - PLATELET COUNT DECREASED [None]
  - POST PROCEDURAL HAEMORRHAGE [None]
  - VISUAL DISTURBANCE [None]
  - WHITE BLOOD CELL COUNT DECREASED [None]
